FAERS Safety Report 8801415 (Version 3)
Quarter: 2012Q4

REPORT INFORMATION
  Report Type: 
  Country: DK (occurrence: FR)
  Receive Date: 20120921
  Receipt Date: 20121018
  Transmission Date: 20130627
  Serious: Yes (Disabling)
  Sender: FDA-Public Use
  Company Number: FR-FRI-1000038395

PATIENT
  Sex: Female

DRUGS (11)
  1. ESCITALOPRAM [Suspect]
     Indication: DEPRESSION
     Dosage: 20 mg
     Route: 048
     Dates: start: 201101, end: 20120418
  2. INEXIUM [Interacting]
     Indication: GASTRITIS
     Dosage: 20 mg
     Route: 048
     Dates: start: 201109
  3. DUROGESIC [Concomitant]
     Indication: BACK PAIN
     Dosage: 0.3333 mcg (1 DF, 1 in 72 hours)
     Route: 062
     Dates: end: 20120418
  4. HYDROCORTISONE ROUSSEL [Concomitant]
     Indication: ADRENAL INSUFFICIENCY
     Dosage: 10 mg
     Route: 048
  5. LEVOTHYROX [Concomitant]
     Indication: SECONDARY HYPOTHYROIDISM
     Dosage: 75 mcg
     Route: 048
  6. SERESTA [Concomitant]
     Indication: DEPRESSION
     Dosage: 40 mg
     Route: 048
  7. ZOLPIDEM [Concomitant]
     Indication: INSOMNIA
     Dosage: 10 mg
     Route: 048
  8. PARKINANE [Concomitant]
     Indication: EXTRAPYRAMIDAL DISORDER
     Dosage: 5 mg
     Route: 048
     Dates: start: 201107, end: 20120424
  9. MOVICOL [Concomitant]
     Dosage: According to stools
  10. LANSOYL [Concomitant]
     Dosage: According to stools
  11. PARACETAMOL [Concomitant]
     Dosage: 3 gram

REACTIONS (2)
  - Extrapyramidal disorder [Recovered/Resolved with Sequelae]
  - Drug interaction [Recovered/Resolved with Sequelae]
